FAERS Safety Report 6723471-4 (Version None)
Quarter: 2010Q2

REPORT INFORMATION
  Report Type: 
  Country: None (occurrence: None)
  Receive Date: 20100513
  Receipt Date: 20100505
  Transmission Date: 20101027
  Serious: Yes (Other)
  Sender: FDA-Public Use
  Company Number: US-BRISTOL-MYERS SQUIBB COMPANY-15100373

PATIENT
  Age: 61 Year
  Sex: Male

DRUGS (1)
  1. AVALIDE [Suspect]
     Indication: BLOOD PRESSURE
     Dates: start: 20100301

REACTIONS (1)
  - COELIAC DISEASE [None]
